FAERS Safety Report 8550316-2 (Version None)
Quarter: 2012Q3

REPORT INFORMATION
  Report Type: 
  Country: None (occurrence: None)
  Receive Date: 20120718
  Receipt Date: 20120712
  Transmission Date: 20120928
  Serious: Yes (Hospitalization)
  Sender: FDA-Public Use
  Company Number: DKLU1083195

PATIENT
  Age: 33 Year
  Sex: Male

DRUGS (3)
  1. SABRIL [Suspect]
     Indication: CONVULSION
     Dosage: 1000 MG MILLIGRAM(S), AM, 1000 MG MILLIGRAM(S) AFTERNOON, 1500 MG MILLIGRAM(S), PM
     Dates: start: 20100215
  2. SABRIL [Suspect]
     Indication: EPILEPSY
     Dosage: 1000 MG MILLIGRAM(S), AM, 1000 MG MILLIGRAM(S) AFTERNOON, 1500 MG MILLIGRAM(S), PM
     Dates: start: 20100215
  3. SABRIL [Suspect]
     Indication: PARTIAL SEIZURES
     Dosage: 1000 MG MILLIGRAM(S), AM, 1000 MG MILLIGRAM(S) AFTERNOON, 1500 MG MILLIGRAM(S), PM
     Dates: start: 20100215

REACTIONS (1)
  - MYASTHENIA GRAVIS [None]
